FAERS Safety Report 18499278 (Version 1)
Quarter: 2020Q4

REPORT INFORMATION
  Report Type: Report from Study
  Country: FR (occurrence: FR)
  Receive Date: 20201112
  Receipt Date: 20201112
  Transmission Date: 20210114
  Serious: Yes (Death, Hospitalization, Other)
  Sender: FDA-Public Use
  Company Number: FR-TAKEDA-2019TUS039385

PATIENT
  Sex: Male
  Weight: 64 kg

DRUGS (1)
  1. IXAZOMIB [Suspect]
     Active Substance: IXAZOMIB
     Indication: PLASMA CELL MYELOMA
     Dosage: UNK
     Route: 065
     Dates: start: 20190108

REACTIONS (16)
  - Confusional state [Fatal]
  - Weight decreased [Unknown]
  - Plasma cell myeloma [Fatal]
  - Urosepsis [Unknown]
  - Anaemia [Recovered/Resolved]
  - Hyperhidrosis [Unknown]
  - Asthenia [Unknown]
  - General physical health deterioration [Fatal]
  - Mouth haemorrhage [Recovered/Resolved]
  - Febrile bone marrow aplasia [Recovered/Resolved]
  - Somnolence [Recovered/Resolved]
  - Escherichia bacteraemia [Unknown]
  - Retinal haemorrhage [Not Recovered/Not Resolved]
  - Epistaxis [Not Recovered/Not Resolved]
  - Hyperthermia [Fatal]
  - Thrombocytopenia [Recovered/Resolved]

NARRATIVE: CASE EVENT DATE: 20190528
